FAERS Safety Report 7903139-9 (Version None)
Quarter: 2011Q4

REPORT INFORMATION
  Report Type: 
  Country: None (occurrence: None)
  Receive Date: 20111107
  Receipt Date: 20111027
  Transmission Date: 20120403
  Serious: Yes (Disabling)
  Sender: FDA-Public Use
  Company Number: 2011GR_BP100018

PATIENT
  Age: 57 Year
  Sex: Male

DRUGS (2)
  1. TAMSULOSIN HCL [Concomitant]
  2. FINASTERIDE [Suspect]
     Indication: BENIGN PROSTATIC HYPERPLASIA
     Dosage: 5 MG (5 MG, 1 IN 1 D), ORAL
     Route: 048
     Dates: start: 20090101, end: 20110301

REACTIONS (2)
  - DEPRESSION [None]
  - BREAST DISORDER MALE [None]
